FAERS Safety Report 15028579 (Version 1)
Quarter: 2018Q2

REPORT INFORMATION
  Report Type: Spontaneous
  Country: US (occurrence: US)
  Receive Date: 20180526
  Receipt Date: 20180526
  Transmission Date: 20180711
  Serious: No
  Sender: FDA-Public Use
  Company Number: None

PATIENT
  Age: 16 Year
  Sex: Female

DRUGS (1)
  1. MYCOPHENOLATE MOFETIL CAP 250MG [Suspect]
     Active Substance: MYCOPHENOLATE MOFETIL
     Route: 048
     Dates: start: 20180226, end: 20180526

REACTIONS (5)
  - Abdominal pain [None]
  - Flatulence [None]
  - Abdominal distension [None]
  - Blood pressure increased [None]
  - Back pain [None]

NARRATIVE: CASE EVENT DATE: 20180526
